FAERS Safety Report 9082194 (Version 1)
Quarter: 2013Q1

REPORT INFORMATION
  Report Type: Report from Study
  Country: US (occurrence: US)
  Receive Date: 20130130
  Receipt Date: 20130130
  Transmission Date: 20140127
  Serious: No
  Sender: FDA-Public Use
  Company Number: US-ABBOTT-12P-163-0978915-00

PATIENT
  Age: 45 Year
  Sex: Female

DRUGS (3)
  1. HUMIRA [Suspect]
     Indication: CROHN^S DISEASE
     Dates: start: 20120516
  2. TOPAMAX [Concomitant]
     Indication: MIGRAINE
     Dosage: DAILY
     Route: 048
  3. LEXAPRO [Concomitant]
     Indication: MIGRAINE
     Dosage: DAILY
     Route: 048

REACTIONS (2)
  - Nausea [Recovered/Resolved]
  - Headache [Recovered/Resolved]
